FAERS Safety Report 25332121 (Version 1)
Quarter: 2025Q2

REPORT INFORMATION
  Report Type: Spontaneous
  Country: FR (occurrence: FR)
  Receive Date: 20250519
  Receipt Date: 20250519
  Transmission Date: 20250717
  Serious: Yes (Hospitalization, Other)
  Sender: EMD SERONO INC
  Company Number: FR-Merck Healthcare KGaA-2025024092

PATIENT
  Age: 58 Year
  Sex: Female

DRUGS (1)
  1. EUTHYROX [Suspect]
     Active Substance: LEVOTHYROXINE SODIUM
     Indication: Autoimmune thyroiditis
     Dosage: EUTHYROX 25 PLUS 1/2 TABLET EVERY MORNING?LOT EXPIRATION DATE: DEC-2024

REACTIONS (15)
  - Loss of consciousness [Unknown]
  - Head discomfort [Unknown]
  - Vision blurred [Unknown]
  - Disturbance in attention [Unknown]
  - Fatigue [Unknown]
  - Condition aggravated [Unknown]
  - Autoimmune thyroiditis [Unknown]
  - Nausea [Unknown]
  - Diarrhoea [Unknown]
  - Fall [Unknown]
  - Joint dislocation [Unknown]
  - Shoulder fracture [Unknown]
  - General physical health deterioration [Unknown]
  - Intentional product use issue [Unknown]
  - Expired product administered [Unknown]

NARRATIVE: CASE EVENT DATE: 20250301
